FAERS Safety Report 23085186 (Version 1)
Quarter: 2023Q4

REPORT INFORMATION
  Report Type: Spontaneous
  Country: US (occurrence: None)
  Receive Date: 20231017
  Receipt Date: 20231017
  Transmission Date: 20240110
  Serious: Yes (Hospitalization)
  Sender: FDA-Public Use
  Company Number: None

PATIENT
  Age: 79 Year
  Sex: Male
  Weight: 73.9 kg

DRUGS (1)
  1. APIXABAN [Suspect]
     Active Substance: APIXABAN
     Dosage: FREQUENCY : TWICE A DAY;?
     Route: 048
     Dates: start: 20221107, end: 20221108

REACTIONS (9)
  - Atrial fibrillation [None]
  - Atrial flutter [None]
  - Pneumomediastinum [None]
  - Atrial thrombosis [None]
  - Melaena [None]
  - Haemoglobin decreased [None]
  - Gastric ulcer [None]
  - Gastric polyps [None]
  - Gastrointestinal haemorrhage [None]

NARRATIVE: CASE EVENT DATE: 20221107
